FAERS Safety Report 5336613-2 (Version None)
Quarter: 2007Q2

REPORT INFORMATION
  Report Type: 
  Country: None (occurrence: None)
  Receive Date: 20070524
  Receipt Date: 20070514
  Transmission Date: 20071010
  Serious: Yes (Hospitalization)
  Sender: FDA-Public Use
  Company Number: T07-USA-01707-01

PATIENT
  Age: 80 Year
  Sex: Male
  Weight: 79.3795 kg

DRUGS (17)
  1. MEMANTINE HCL [Suspect]
     Indication: DEMENTIA ALZHEIMER'S TYPE
     Dosage: 28 MG QD PO
     Route: 048
     Dates: start: 20060727
  2. ATENOLOL [Concomitant]
  3. POTASSIUM CHLORIDE [Concomitant]
  4. ARICEPT [Concomitant]
  5. GEODON [Concomitant]
  6. LASIX [Concomitant]
  7. ASPIRIN [Concomitant]
  8. LISNIOPRIL [Concomitant]
  9. SENOKOT [Concomitant]
  10. FLOMAX [Concomitant]
  11. CADUET [Concomitant]
  12. PROPOXYPHENE NAPSYLATE W/ ACETAMINOPHEN [Concomitant]
  13. PROMETHAZINE [Concomitant]
  14. CARAFATE [Concomitant]
  15. ZELNORM [Concomitant]
  16. LEXAPRO [Concomitant]
  17. BENTYL [Concomitant]

REACTIONS (7)
  - ACUTE PRERENAL FAILURE [None]
  - BLOOD PRESSURE INCREASED [None]
  - CHOLELITHIASIS [None]
  - DEHYDRATION [None]
  - HAEMATOCRIT DECREASED [None]
  - HAEMOGLOBIN DECREASED [None]
  - PANCREATITIS ACUTE [None]
